FAERS Safety Report 9637881 (Version 4)
Quarter: 2013Q4

REPORT INFORMATION
  Report Type: Spontaneous
  Country: US (occurrence: US)
  Receive Date: 20131022
  Receipt Date: 20131028
  Transmission Date: 20140711
  Serious: Yes (Hospitalization, Other)
  Sender: FDA-Public Use
  Company Number: US-RB-058990-13

PATIENT
  Age: 52 Year
  Sex: Male

DRUGS (1)
  1. DELSYM CHILD GRAPE [Suspect]
     Indication: COUGH
     Dosage: DRANK AN ENTIRE FULL BOTTLE OF PRODUCT
     Route: 048
     Dates: start: 20131013

REACTIONS (8)
  - Fluid retention [Unknown]
  - Dyspnoea [Unknown]
  - Hyperhidrosis [Unknown]
  - Accidental overdose [Unknown]
  - Haematemesis [Unknown]
  - Drug ineffective [Not Recovered/Not Resolved]
  - Dizziness [Unknown]
  - Nausea [Unknown]
